FAERS Safety Report 7653150-0 (Version None)
Quarter: 2011Q3

REPORT INFORMATION
  Report Type: 
  Country: None (occurrence: None)
  Receive Date: 20110803
  Receipt Date: 20110725
  Transmission Date: 20111222
  Serious: Yes (Hospitalization)
  Sender: FDA-Public Use
  Company Number: US-NOVOPROD-332449

PATIENT
  Sex: Female
  Weight: 45.351 kg

DRUGS (1)
  1. NOVOLIN 70/30 [Suspect]
     Indication: DIABETES MELLITUS
     Dosage: 40 U, BID
     Route: 058
     Dates: start: 20110101

REACTIONS (5)
  - BLOOD GLUCOSE INCREASED [None]
  - DEHYDRATION [None]
  - URINARY TRACT INFECTION [None]
  - HYPERTENSION [None]
  - BLOOD GLUCOSE FLUCTUATION [None]
